FAERS Safety Report 21567987 (Version 2)
Quarter: 2022Q4

REPORT INFORMATION
  Report Type: Report from Study
  Country: ES (occurrence: ES)
  Receive Date: 20221108
  Receipt Date: 20221124
  Transmission Date: 20230113
  Serious: Yes (Hospitalization)
  Sender: FDA-Public Use
  Company Number: ES-SEATTLE GENETICS-2022SGN08230

PATIENT
  Age: 63 Year
  Sex: Male
  Weight: 64.4 kg

DRUGS (8)
  1. TISOTUMAB VEDOTIN [Suspect]
     Active Substance: TISOTUMAB VEDOTIN
     Indication: Squamous cell carcinoma of head and neck
     Dosage: 1.7 MG/KG ON DAYS 1 AND 15 OF EVERY 28 DAY CYCLE
     Route: 042
     Dates: start: 20220517
  2. OMEPRAZOLE [Concomitant]
     Active Substance: OMEPRAZOLE
     Dosage: UNK
     Dates: start: 20160704
  3. DEXKETOPROFEN TROMETAMOL [Concomitant]
     Active Substance: DEXKETOPROFEN TROMETAMOL
     Dosage: UNK
     Dates: start: 20220621
  4. ACETAMINOPHEN [Concomitant]
     Active Substance: ACETAMINOPHEN
     Indication: Neck pain
     Dosage: UNK
     Dates: start: 2021
  5. ZALDIAR [Concomitant]
     Active Substance: ACETAMINOPHEN\TRAMADOL HYDROCHLORIDE
     Indication: Gingivitis
     Dosage: UNK
     Dates: start: 20220717
  6. DULOXETINE [Concomitant]
     Active Substance: DULOXETINE
     Indication: Peripheral sensory neuropathy
     Dosage: UNK
     Dates: start: 20220720
  7. MEGESTROL ACETATE [Concomitant]
     Active Substance: MEGESTROL ACETATE
     Indication: Decreased appetite
     Dosage: UNK
     Dates: start: 20220720, end: 20220831
  8. POLYETHYLENE GLYCOL 3350\POTASSIUM CHLORIDE\SODIUM BICARBONATE\SODIUM [Concomitant]
     Active Substance: POLYETHYLENE GLYCOL 3350\POTASSIUM CHLORIDE\SODIUM BICARBONATE\SODIUM CHLORIDE
     Indication: Constipation
     Dosage: UNK
     Dates: start: 20220707

REACTIONS (1)
  - Acute motor-sensory axonal neuropathy [Recovered/Resolved]

NARRATIVE: CASE EVENT DATE: 20220901
